FAERS Safety Report 9319519 (Version 1)
Quarter: 2013Q2

REPORT INFORMATION
  Report Type: Spontaneous
  Country: US (occurrence: None)
  Receive Date: 20130529
  Receipt Date: 20130529
  Transmission Date: 20140414
  Serious: Yes (Hospitalization)
  Sender: FDA-Public Use
  Company Number: None

PATIENT
  Age: 54 Year
  Sex: Female
  Weight: 63.2 kg

DRUGS (1)
  1. METFORMIN [Suspect]
     Indication: DRUG LEVEL
     Dosage: TAKE TWO 500 MG TABLETS, BID, PO
     Route: 048
     Dates: start: 20130515, end: 20130528

REACTIONS (3)
  - Abdominal pain upper [None]
  - Erythema [None]
  - Swelling [None]
